FAERS Safety Report 9292772 (Version 1)
Quarter: 2013Q2

REPORT INFORMATION
  Report Type: Spontaneous
  Country: EC (occurrence: EC)
  Receive Date: 20130516
  Receipt Date: 20130516
  Transmission Date: 20140414
  Serious: Yes (Other)
  Sender: FDA-Public Use
  Company Number: PHHY2013EC047991

PATIENT
  Sex: Male

DRUGS (6)
  1. ONBREZ [Suspect]
     Dates: start: 201301
  2. ATROVENT [Concomitant]
     Dates: start: 2012
  3. SALBUTAMOL [Concomitant]
     Dates: start: 2012
  4. ETHAMBUTOL [Concomitant]
     Dosage: 500 MG, UNK
  5. ALZIDE//PYRAZINAMIDE [Concomitant]
     Dosage: 500 MG, UNK
  6. OXYGEN [Concomitant]

REACTIONS (1)
  - Tuberculosis [Not Recovered/Not Resolved]
